FAERS Safety Report 7871265-9 (Version None)
Quarter: 2011Q4

REPORT INFORMATION
  Report Type: 
  Country: None (occurrence: None)
  Receive Date: 20111029
  Receipt Date: 20110228
  Transmission Date: 20120403
  Serious: No
  Sender: FDA-Public Use
  Company Number: US-AMGEN-USASP2011011458

PATIENT
  Age: 73 Year
  Sex: Female

DRUGS (1)
  1. ENBREL [Suspect]
     Indication: RHEUMATOID ARTHRITIS
     Dosage: 50 MG, QWK
     Dates: start: 20060501

REACTIONS (5)
  - NIGHT SWEATS [None]
  - SEASONAL ALLERGY [None]
  - NASOPHARYNGITIS [None]
  - RESPIRATORY TRACT HAEMORRHAGE [None]
  - PYREXIA [None]
